FAERS Safety Report 6533180-2 (Version None)
Quarter: 2010Q1

REPORT INFORMATION
  Report Type: 
  Country: None (occurrence: None)
  Receive Date: 20100111
  Receipt Date: 20100107
  Transmission Date: 20100710
  Serious: Yes (Other)
  Sender: FDA-Public Use
  Company Number: US-BRISTOL-MYERS SQUIBB COMPANY-14925796

PATIENT
  Age: 75 Year
  Sex: Male

DRUGS (2)
  1. COUMADIN [Suspect]
  2. LANTUS [Suspect]
     Indication: TYPE 2 DIABETES MELLITUS
     Dosage: 1 DOSAGE FORM = 13-14 UNITS  100 IU/ML - PARENTERAL INJECTION
     Route: 058
     Dates: start: 20060101

REACTIONS (2)
  - DIABETIC RETINOPATHY [None]
  - ECCHYMOSIS [None]
